FAERS Safety Report 8574521-4 (Version None)
Quarter: 2012Q3

REPORT INFORMATION
  Report Type: 
  Country: None (occurrence: None)
  Receive Date: 20120806
  Receipt Date: 20120730
  Transmission Date: 20120928
  Serious: Yes (Other)
  Sender: FDA-Public Use
  Company Number: US-RB-043016-12

PATIENT
  Sex: Female

DRUGS (1)
  1. SUBOXONE [Suspect]
     Indication: DRUG DEPENDENCE
     Route: 060
     Dates: start: 20120726

REACTIONS (4)
  - LOSS OF CONSCIOUSNESS [None]
  - ASTHENIA [None]
  - SOMNOLENCE [None]
  - EUPHORIC MOOD [None]
